FAERS Safety Report 12282561 (Version 1)
Quarter: 2016Q2

REPORT INFORMATION
  Report Type: Spontaneous
  Country: US (occurrence: US)
  Receive Date: 20160419
  Receipt Date: 20160419
  Transmission Date: 20160815
  Serious: Yes (Other)
  Sender: FDA-Public Use
  Company Number: US-TEVA-652243USA

PATIENT
  Sex: Male
  Weight: 5.46 kg

DRUGS (1)
  1. MIRTAZAPINE. [Suspect]
     Active Substance: MIRTAZAPINE
     Indication: DEPRESSION
     Dosage: 15 MILLIGRAM DAILY;
     Route: 048
     Dates: start: 201404

REACTIONS (6)
  - Weight increased [Unknown]
  - Visual impairment [Unknown]
  - Corneal infection [Unknown]
  - Cataract [Unknown]
  - Constipation [Unknown]
  - Breast enlargement [Unknown]
